FAERS Safety Report 12354912 (Version 1)
Quarter: 2016Q2

REPORT INFORMATION
  Report Type: Spontaneous
  Country: US (occurrence: US)
  Receive Date: 20160511
  Receipt Date: 20160511
  Transmission Date: 20160815
  Serious: Yes (Hospitalization)
  Sender: FDA-Public Use
  Company Number: US-ROXANE LABORATORIES, INC.-2016-RO-00843RO

PATIENT
  Age: 49 Year
  Sex: Female
  Weight: 90.9 kg

DRUGS (27)
  1. RUXOLITINIB [Suspect]
     Active Substance: RUXOLITINIB
     Route: 048
     Dates: start: 20151118
  2. LANTUS [Concomitant]
     Active Substance: INSULIN GLARGINE
     Route: 065
     Dates: start: 2013
  3. PROTONIX [Concomitant]
     Active Substance: PANTOPRAZOLE SODIUM
     Route: 065
     Dates: start: 2005
  4. OXYCONTIN [Concomitant]
     Active Substance: OXYCODONE HYDROCHLORIDE
     Route: 065
     Dates: start: 20151008
  5. METFORMIN [Concomitant]
     Active Substance: METFORMIN HYDROCHLORIDE
     Route: 065
     Dates: start: 2000
  6. OXYCODONE HYDROCHLORIDE. [Suspect]
     Active Substance: OXYCODONE HYDROCHLORIDE
     Indication: CANCER PAIN
     Route: 048
     Dates: start: 20151015
  7. OXYCODONE HYDROCHLORIDE. [Suspect]
     Active Substance: OXYCODONE HYDROCHLORIDE
     Route: 065
  8. HUMALOG [Concomitant]
     Active Substance: INSULIN LISPRO
     Route: 065
     Dates: start: 2014
  9. MELATONIN [Concomitant]
     Active Substance: MELATONIN
     Route: 065
     Dates: start: 20150901
  10. TRIGLIDE [Concomitant]
     Active Substance: FENOFIBRATE
     Route: 065
     Dates: start: 2010
  11. CAPECITABINE. [Suspect]
     Active Substance: CAPECITABINE
     Indication: ADENOCARCINOMA PANCREAS
     Route: 048
     Dates: start: 20151008
  12. LISINOPRIL. [Concomitant]
     Active Substance: LISINOPRIL
     Route: 065
     Dates: start: 2005
  13. ZOFRAN [Concomitant]
     Active Substance: ONDANSETRON HYDROCHLORIDE
     Route: 065
     Dates: start: 201502
  14. COMPAZINE [Concomitant]
     Active Substance: PROCHLORPERAZINE MALEATE
     Route: 065
     Dates: start: 201502
  15. ALBUTEROL HFA [Concomitant]
     Active Substance: ALBUTEROL SULFATE
     Route: 065
     Dates: start: 2010
  16. NASACORT AQ [Concomitant]
     Active Substance: TRIAMCINOLONE ACETONIDE
     Route: 065
  17. PROZAC [Concomitant]
     Active Substance: FLUOXETINE HYDROCHLORIDE
     Route: 065
     Dates: start: 20150901
  18. MULTIVITAMIN [Concomitant]
     Active Substance: VITAMINS
     Route: 065
     Dates: start: 2013
  19. TYLENOL [Concomitant]
     Active Substance: ACETAMINOPHEN
     Route: 065
     Dates: start: 20151015
  20. SENOKOT [Concomitant]
     Active Substance: SENNOSIDES
     Route: 065
  21. ASPIRIN. [Concomitant]
     Active Substance: ASPIRIN
     Route: 065
     Dates: start: 2010
  22. KLONOPIN [Concomitant]
     Active Substance: CLONAZEPAM
     Route: 065
     Dates: start: 20150901
  23. GABAPENTIN. [Concomitant]
     Active Substance: GABAPENTIN
     Route: 065
     Dates: start: 2000
  24. HYDROCODONE BITARTRATE AND ACETAMINOPHEN [Concomitant]
     Active Substance: ACETAMINOPHEN\HYDROCODONE BITARTRATE
     Route: 065
     Dates: start: 201502, end: 20151015
  25. OCEAN NASAL [Concomitant]
     Route: 065
  26. OXYCODONE HYDROCHLORIDE. [Suspect]
     Active Substance: OXYCODONE HYDROCHLORIDE
     Route: 065
  27. RUXOLITINIB [Suspect]
     Active Substance: RUXOLITINIB
     Indication: ADENOCARCINOMA PANCREAS
     Route: 048
     Dates: start: 20151008, end: 20151118

REACTIONS (1)
  - Abdominal pain [Recovered/Resolved]

NARRATIVE: CASE EVENT DATE: 20151119
